FAERS Safety Report 9848325 (Version 3)
Quarter: 2014Q1

REPORT INFORMATION
  Report Type: Report from Study
  Country: DE (occurrence: DE)
  Receive Date: 20140128
  Receipt Date: 20140207
  Transmission Date: 20141002
  Serious: Yes (Hospitalization, Other)
  Sender: FDA-Public Use
  Company Number: PHHY2013DE125426

PATIENT
  Sex: Female
  Weight: 100 kg

DRUGS (1)
  1. ICL670A [Suspect]
     Indication: MYELODYSPLASTIC SYNDROME
     Dosage: 500 MG, QD
     Route: 048
     Dates: start: 20110117, end: 20110118

REACTIONS (2)
  - General physical health deterioration [Recovered/Resolved]
  - Bronchopneumonia [Recovered/Resolved]
